FAERS Safety Report 14496822 (Version 4)
Quarter: 2022Q1

REPORT INFORMATION
  Report Type: Spontaneous
  Country: US (occurrence: US)
  Receive Date: 20180207
  Receipt Date: 20220308
  Transmission Date: 20220423
  Serious: No
  Sender: FDA-Public Use
  Company Number: US-PFIZER INC-2018053031

PATIENT
  Age: 76 Year
  Sex: Female
  Weight: 90.72 kg

DRUGS (15)
  1. XELJANZ XR [Suspect]
     Active Substance: TOFACITINIB CITRATE
     Indication: Rheumatoid arthritis
     Dosage: 11 MG, DAILY (TABLETS BY MOUTH DAILY)
     Route: 048
     Dates: start: 2014
  2. XELJANZ XR [Suspect]
     Active Substance: TOFACITINIB CITRATE
     Dosage: 11 MG, DAILY
  3. CLONIDINE [Concomitant]
     Active Substance: CLONIDINE
     Dosage: 0.1 MG TABLETS BY MOUTH TWICE A DAY
     Route: 048
  4. CLONIDINE [Concomitant]
     Active Substance: CLONIDINE
     Dosage: 0.2 MG, 2X/DAY
  5. LEVEMIR [Concomitant]
     Active Substance: INSULIN DETEMIR
     Dosage: 30 IU, 1X/DAY
  6. HUMALOG [Concomitant]
     Active Substance: INSULIN LISPRO
     Dosage: 8 IU, 2X/DAY
  7. EZETIMIBE [Concomitant]
     Active Substance: EZETIMIBE
     Dosage: 10 MG, 1X/DAY
  8. HYDRALAZINE [Concomitant]
     Active Substance: HYDRALAZINE HYDROCHLORIDE
     Dosage: 200 MG, 2X/DAY (50MG; 4 PILLS 2 TIMES A DAY)
  9. METOPROLOL SUCCINATE [Concomitant]
     Active Substance: METOPROLOL SUCCINATE
     Dosage: UNK, 1X/DAY (25; 1 PER DAY)
  10. OLMESARTAN [Concomitant]
     Active Substance: OLMESARTAN
     Dosage: UNK, 1X/DAY (40; 1 PER DAY)
  11. ROSUVASTATIN [Concomitant]
     Active Substance: ROSUVASTATIN
     Dosage: 5 MG, UNK (1 MON-WED-FRI)
  12. IRON [Concomitant]
     Active Substance: IRON
     Dosage: 325 MG, 1X/DAY
  13. VITAMIN D2 [Concomitant]
     Active Substance: ERGOCALCIFEROL
     Dosage: 5000, 1X/DAY
  14. VITAMIN E [Concomitant]
     Active Substance: .ALPHA.-TOCOPHEROL
     Dosage: 400 MG, 1X/DAY
  15. FOLIC ACID [Concomitant]
     Active Substance: FOLIC ACID
     Dosage: 400 MG, 1X/DAY

REACTIONS (4)
  - Product prescribing error [Unknown]
  - Arthralgia [Not Recovered/Not Resolved]
  - Pain in extremity [Not Recovered/Not Resolved]
  - Influenza [Recovered/Resolved]

NARRATIVE: CASE EVENT DATE: 20180129
